FAERS Safety Report 8609262-8 (Version None)
Quarter: 2012Q3

REPORT INFORMATION
  Report Type: 
  Country: None (occurrence: None)
  Receive Date: 20120821
  Receipt Date: 20120813
  Transmission Date: 20120928
  Serious: Yes (Hospitalization, Other)
  Sender: FDA-Public Use
  Company Number: US-AMGEN-USASP2012051437

PATIENT
  Age: 78 Year
  Sex: Male
  Weight: 48.98 kg

DRUGS (2)
  1. PROCRIT [Suspect]
     Dosage: 30000 IU, UNK
     Route: 058
  2. PROCRIT [Suspect]
     Indication: MYELODYSPLASTIC SYNDROME
     Dosage: 20000 IU, UNK
     Route: 058
     Dates: start: 20110101, end: 20120701

REACTIONS (7)
  - PNEUMONIA [None]
  - EMPHYSEMA [None]
  - DRUG INEFFECTIVE [None]
  - ARTERIOSCLEROSIS CORONARY ARTERY [None]
  - MYOCARDIAL INFARCTION [None]
  - CHRONIC OBSTRUCTIVE PULMONARY DISEASE [None]
  - CARDIAC FAILURE CONGESTIVE [None]
